FAERS Safety Report 6157639-5 (Version None)
Quarter: 2009Q2

REPORT INFORMATION
  Report Type: 
  Country: None (occurrence: None)
  Receive Date: 20090416
  Receipt Date: 20090410
  Transmission Date: 20091009
  Serious: Yes (Hospitalization)
  Sender: FDA-Public Use
  Company Number: US-GENENTECH-272317

PATIENT
  Age: 78 Year
  Sex: Female
  Weight: 72.27 kg

DRUGS (5)
  1. BEVACIZUMAB [Suspect]
     Indication: T-CELL LYMPHOMA
  2. CYCLOPHOSPHAMIDE [Concomitant]
     Indication: T-CELL LYMPHOMA
  3. DOXORUBICIN [Concomitant]
     Indication: T-CELL LYMPHOMA
  4. PREDNISONE TAB [Concomitant]
     Indication: T-CELL LYMPHOMA
     Route: 048
  5. VINCRISTINE [Concomitant]
     Indication: T-CELL LYMPHOMA

REACTIONS (3)
  - FEBRILE NEUTROPENIA [None]
  - LYMPHOPENIA [None]
  - WHITE BLOOD CELL COUNT DECREASED [None]
